FAERS Safety Report 10339733 (Version 1)
Quarter: 2014Q3

REPORT INFORMATION
  Report Type: Spontaneous
  Country: ID (occurrence: ID)
  Receive Date: 20140724
  Receipt Date: 20140724
  Transmission Date: 20150326
  Serious: Yes (Hospitalization)
  Sender: FDA-Public Use
  Company Number: ID-GLAXOSMITHKLINE-B1015445A

PATIENT
  Age: 56 Year
  Sex: Female

DRUGS (4)
  1. METHYLPREDNISOLONE [Concomitant]
     Active Substance: METHYLPREDNISOLONE
     Indication: ASTHMA
     Dosage: 4MG PER DAY
     Route: 048
     Dates: start: 20140712
  2. SERETIDE [Suspect]
     Active Substance: FLUTICASONE FUROATE\SALMETEROL XINAFOATE
     Indication: ASTHMA
     Dosage: 1PUFF SINGLE DOSE
     Route: 055
     Dates: start: 20140712, end: 20140712
  3. MULTIVITAMIN [Concomitant]
     Active Substance: VITAMINS
     Route: 048
     Dates: start: 20140712
  4. FAMOTIDINE. [Concomitant]
     Active Substance: FAMOTIDINE
     Indication: GASTRITIS
     Route: 048
     Dates: start: 20140712

REACTIONS (2)
  - Nausea [Recovered/Resolved]
  - Tremor [Recovered/Resolved]

NARRATIVE: CASE EVENT DATE: 20140712
